FAERS Safety Report 8465980 (Version 4)
Quarter: 2014Q4

REPORT INFORMATION
  Report Type: Spontaneous
  Country: US (occurrence: US)
  Receive Date: 20120319
  Receipt Date: 20141002
  Transmission Date: 20150529
  Serious: Yes (Hospitalization, Other)
  Sender: FDA-Public Use
  Company Number: US-009507513-1203USA01938

PATIENT
  Sex: Female

DRUGS (8)
  1. FOSAMAX [Suspect]
     Active Substance: ALENDRONATE SODIUM
     Dosage: 70 MG, QW
     Dates: start: 200108, end: 2010
  2. ALENDRONATE SODIUM. [Suspect]
     Active Substance: ALENDRONATE SODIUM
     Indication: OSTEOPOROSIS
     Dosage: 70 MG, UNK
     Dates: start: 200803, end: 2010
  3. OMEGA-3 MARINE TRIGLYCERIDES [Concomitant]
     Active Substance: FISH OIL
     Dosage: UNK, QD
  4. CYANOCOBALAMIN. [Concomitant]
     Active Substance: CYANOCOBALAMIN
     Dosage: UNK, QD
  5. VITAMINS (UNSPECIFIED) [Concomitant]
     Active Substance: VITAMINS
     Dosage: UNK, QD
  6. GONGJINHYANG SEOL WHITENING INTENSIVE [Concomitant]
     Active Substance: DIACETYL BENZOYL LATHYROL
     Dosage: UNK, QD
  7. FOSAMAX [Suspect]
     Active Substance: ALENDRONATE SODIUM
     Indication: OSTEOPOROSIS
     Dosage: 10 MG, UNK
     Route: 048
     Dates: start: 2000, end: 200107
  8. GARLIC. [Concomitant]
     Active Substance: GARLIC
     Dosage: UNK, QD

REACTIONS (28)
  - Fall [Unknown]
  - Thyroid disorder [Unknown]
  - Pain in extremity [Unknown]
  - Gastrooesophageal reflux disease [Unknown]
  - Osteoarthritis [Unknown]
  - Oesophageal candidiasis [Unknown]
  - Cholecystitis chronic [Unknown]
  - Hyponatraemia [Recovered/Resolved]
  - Anaemia [Not Recovered/Not Resolved]
  - Cardiomegaly [Unknown]
  - Femur fracture [Recovered/Resolved with Sequelae]
  - Dehydration [Recovered/Resolved]
  - Anxiety [Unknown]
  - Delirium [Recovered/Resolved]
  - Arthritis [Unknown]
  - Bile duct stone [Not Recovered/Not Resolved]
  - Femur fracture [Unknown]
  - Cholecystectomy [Unknown]
  - Coronary artery disease [Unknown]
  - Fall [Unknown]
  - Bundle branch block [Unknown]
  - Hypoaesthesia [Unknown]
  - Pneumonia [Unknown]
  - Chronic obstructive pulmonary disease [Unknown]
  - Intramedullary rod insertion [Unknown]
  - Cardiac failure congestive [Unknown]
  - Enterococcal infection [Unknown]
  - Osteopenia [Unknown]

NARRATIVE: CASE EVENT DATE: 20020718
